FAERS Safety Report 19461260 (Version 4)
Quarter: 2021Q3

REPORT INFORMATION
  Report Type: Other
  Country: KR (occurrence: KR)
  Receive Date: 20210625
  Receipt Date: 20210811
  Transmission Date: 20211014
  Serious: Yes (Other)
  Sender: FDA-Public Use
  Company Number: KR-ROCHE-2763518

PATIENT
  Age: 52 Year
  Sex: Female

DRUGS (3)
  1. TRASTUZUMAB EMTANSINE [Suspect]
     Active Substance: ADO-TRASTUZUMAB EMTANSINE
     Indication: BREAST CANCER
     Dosage: SUBSEQUENT DOSES WERE ADMINISTERED ON 03/NOV/2020, 24/NOV/2020, 15/DEC/2020, 05/JAN/2021 AND 26/JAN/
     Route: 042
     Dates: start: 20201013
  2. SELENIUM [Concomitant]
     Active Substance: SELENIUM
     Dosage: 400/10 OTHERS (MCG/ML)
     Route: 042
     Dates: start: 20201013
  3. TRASTUZUMAB EMTANSINE [Suspect]
     Active Substance: ADO-TRASTUZUMAB EMTANSINE
     Dosage: SUBSEQUENT DOSES WERE ADMINISTERED ON 12/APR/2021, 19/FEB/2021,24/JUN/2021, 15,MAY/2021,28/MAY/2021
     Route: 042
     Dates: start: 20210322

REACTIONS (6)
  - Pancytopenia [Recovered/Resolved]
  - Neutropenia [Recovered/Resolved]
  - Alanine aminotransferase increased [Recovering/Resolving]
  - Arthritis bacterial [Recovered/Resolved]
  - Aspartate aminotransferase increased [Recovering/Resolving]
  - Thrombocytopenia [Recovering/Resolving]

NARRATIVE: CASE EVENT DATE: 20201214
